FAERS Safety Report 8242850-X (Version None)
Quarter: 2012Q1

REPORT INFORMATION
  Report Type: 
  Country: None (occurrence: None)
  Receive Date: 20120314
  Receipt Date: 20100621
  Transmission Date: 20120608
  Serious: Yes (Disabling, Other)
  Sender: FDA-Public Use
  Company Number: PHHY2010US38138

PATIENT
  Age: 39 Year
  Sex: Male

DRUGS (8)
  1. GEODON [Concomitant]
  2. CLOZAPINE [Concomitant]
  3. LAGALGIN (METAMIZOLE SODIUM MONOHYDRATE) [Concomitant]
  4. PAXIL [Concomitant]
  5. FANAPT [Suspect]
     Indication: SCHIZOPHRENIA
     Dosage: 6 MG, BID, ORAL
     Route: 048
     Dates: start: 20100517, end: 20100524
  6. FANAPT [Suspect]
     Indication: SCHIZOPHRENIA
     Dosage: 6 MG, BID, ORAL
     Route: 048
     Dates: start: 20100510, end: 20100517
  7. EXELON [Concomitant]
  8. CLOZARIL [Concomitant]

REACTIONS (2)
  - DEPRESSION [None]
  - ASTHENIA [None]
